FAERS Safety Report 4804575-X (Version None)
Quarter: 2005Q4

REPORT INFORMATION
  Report Type: 
  Country: None (occurrence: None)
  Receive Date: 20051020
  Receipt Date: 20051012
  Transmission Date: 20060501
  Serious: Yes (Hospitalization)
  Sender: FDA-Public Use
  Company Number: US-MERCK-0510USA06864

PATIENT
  Age: 45 Year
  Sex: Male

DRUGS (3)
  1. PROPECIA [Suspect]
     Indication: ALOPECIA
     Route: 048
  2. COUMADIN [Concomitant]
     Route: 065
  3. LUNESTA [Concomitant]
     Route: 065

REACTIONS (2)
  - FOOT FRACTURE [None]
  - THROMBOSIS [None]
